FAERS Safety Report 8989809 (Version 2)
Quarter: 2013Q1

REPORT INFORMATION
  Report Type: Spontaneous
  Country: TR (occurrence: TR)
  Receive Date: 20121228
  Receipt Date: 20130118
  Transmission Date: 20140127
  Serious: Yes (Other)
  Sender: FDA-Public Use
  Company Number: TR-ELI_LILLY_AND_COMPANY-TR201212008233

PATIENT
  Age: 65 Year
  Sex: Female

DRUGS (1)
  1. GEMCITABINE HYDROCHLORIDE [Suspect]
     Indication: OVARIAN CANCER
     Dosage: 1000 MG/M2, OTHER
     Dates: start: 200704

REACTIONS (2)
  - Nephrotic syndrome [Recovered/Resolved]
  - Glomerulonephritis membranous [None]
